FAERS Safety Report 9412390 (Version 1)
Quarter: 2013Q3

REPORT INFORMATION
  Report Type: Spontaneous
  Country: US (occurrence: US)
  Receive Date: 20130722
  Receipt Date: 20130722
  Transmission Date: 20140515
  Serious: Yes (Hospitalization)
  Sender: FDA-Public Use
  Company Number: US-SANOFI-AVENTIS-2013SA072905

PATIENT
  Sex: Male

DRUGS (3)
  1. AUBAGIO [Suspect]
     Indication: MULTIPLE SCLEROSIS
     Route: 048
     Dates: start: 20130508
  2. TRAMADOL [Concomitant]
     Route: 065
  3. GABAPENTIN [Concomitant]
     Route: 065

REACTIONS (1)
  - Multiple sclerosis relapse [Unknown]
